FAERS Safety Report 19629193 (Version 1)
Quarter: 2021Q3

REPORT INFORMATION
  Report Type: Report from Study
  Country: US (occurrence: US)
  Receive Date: 20210729
  Receipt Date: 20210729
  Transmission Date: 20211014
  Serious: Yes (Other)
  Sender: FDA-Public Use
  Company Number: US-PFIZER INC-202100934919

PATIENT

DRUGS (1)
  1. AMIODARONE HCL [Suspect]
     Active Substance: AMIODARONE HYDROCHLORIDE
     Indication: SUPRAVENTRICULAR TACHYCARDIA
     Dosage: SPECIFIED DOSE UNKNOWN (600?1200MG)PER DAY FOR 5?7 DAYS AS A LOADING DOSE

REACTIONS (2)
  - Hypothyroidism [Recovered/Resolved]
  - Erectile dysfunction [Recovered/Resolved]
